FAERS Safety Report 19629197 (Version 1)
Quarter: 2021Q3

REPORT INFORMATION
  Report Type: Spontaneous
  Country: QA (occurrence: QA)
  Receive Date: 20210729
  Receipt Date: 20210729
  Transmission Date: 20211014
  Serious: Yes (Death)
  Sender: FDA-Public Use
  Company Number: QA-PFIZER INC-202100912719

PATIENT
  Age: 39 Year
  Sex: Male

DRUGS (9)
  1. ACYCLOVIR SODIUM. [Suspect]
     Active Substance: ACYCLOVIR SODIUM
     Indication: STRONGYLOIDIASIS
     Dosage: UNK
  2. IVERMECTIN. [Suspect]
     Active Substance: IVERMECTIN
     Indication: STRONGYLOIDIASIS
     Dosage: 200 UG/KG, DAILY
  3. MEROPENEM. [Suspect]
     Active Substance: MEROPENEM
     Dosage: UNK
  4. TAZOCIN [Suspect]
     Active Substance: PIPERACILLIN SODIUM\TAZOBACTAM SODIUM
     Dosage: UNK
  5. VANCOMYCIN [Suspect]
     Active Substance: VANCOMYCIN
     Indication: STRONGYLOIDIASIS
     Dosage: UNK
  6. CIPROFLOXACIN. [Suspect]
     Active Substance: CIPROFLOXACIN
     Indication: PYREXIA
  7. CASPOFUNGIN ACETATE. [Suspect]
     Active Substance: CASPOFUNGIN ACETATE
     Indication: STRONGYLOIDIASIS
     Dosage: UNK
  8. ALBENDAZOLE. [Suspect]
     Active Substance: ALBENDAZOLE
     Indication: STRONGYLOIDIASIS
     Dosage: 400 MG, DAILY, THROUGH NASOGASTRIC TUBE
  9. CIPROFLOXACIN. [Suspect]
     Active Substance: CIPROFLOXACIN
     Indication: EVIDENCE BASED TREATMENT
     Dosage: UNK

REACTIONS (3)
  - Drug ineffective [Fatal]
  - Strongyloidiasis [Fatal]
  - Septic shock [Fatal]
